FAERS Safety Report 25915045 (Version 1)
Quarter: 2025Q4

REPORT INFORMATION
  Report Type: Spontaneous
  Country: RU (occurrence: RU)
  Receive Date: 20251013
  Receipt Date: 20251013
  Transmission Date: 20260118
  Serious: Yes (Hospitalization, Other)
  Sender: JOHNSON AND JOHNSON
  Company Number: RU-JNJFOC-20251010238

PATIENT
  Sex: Male
  Weight: 58 kg

DRUGS (9)
  1. SIRTURO [Suspect]
     Active Substance: BEDAQUILINE FUMARATE
     Indication: Pulmonary tuberculosis
     Route: 048
     Dates: start: 20250711, end: 20250728
  2. FLUCONAZOLE [Suspect]
     Active Substance: FLUCONAZOLE
     Indication: Candida infection
     Dates: start: 20250718, end: 20250727
  3. LEVOFLOXACIN [Suspect]
     Active Substance: LEVOFLOXACIN
     Indication: Pulmonary tuberculosis
     Route: 048
     Dates: start: 20250710, end: 20250728
  4. PYRAZINAMIDE [Suspect]
     Active Substance: PYRAZINAMIDE
     Route: 048
     Dates: start: 20250711, end: 20250728
  5. OMEPRAZOLE [Suspect]
     Active Substance: OMEPRAZOLE
     Dates: start: 20250718, end: 20250727
  6. TERIZIDONE [Suspect]
     Active Substance: TERIZIDONE
     Indication: Pulmonary tuberculosis
     Route: 048
     Dates: start: 20250709, end: 20250728
  7. LINEZOLID [Suspect]
     Active Substance: LINEZOLID
     Indication: Pulmonary tuberculosis
     Dates: start: 20250710, end: 20250827
  8. CARBAMAZEPINE [Suspect]
     Active Substance: CARBAMAZEPINE
     Dates: start: 20250711, end: 20250720
  9. ASPIRIN [Suspect]
     Active Substance: ASPIRIN
     Dates: start: 20250726, end: 20250728

REACTIONS (4)
  - Scleral discolouration [Recovering/Resolving]
  - Blood bilirubin increased [Recovering/Resolving]
  - Bilirubin conjugated increased [Recovering/Resolving]
  - Transaminases increased [Recovering/Resolving]

NARRATIVE: CASE EVENT DATE: 20250728
